FAERS Safety Report 6768050-8 (Version None)
Quarter: 2010Q2

REPORT INFORMATION
  Report Type: 
  Country: None (occurrence: None)
  Receive Date: 20100614
  Receipt Date: 20100609
  Transmission Date: 20101027
  Serious: Yes (Other)
  Sender: FDA-Public Use
  Company Number: B0659696A

PATIENT
  Sex: Male
  Weight: 15 kg

DRUGS (5)
  1. AUGMENTIN '125' [Suspect]
     Indication: ERYSIPELAS
     Dosage: 400MG PER DAY
     Route: 048
     Dates: start: 20100518, end: 20100518
  2. AUGMENTIN '125' [Suspect]
     Indication: ERYSIPELAS
     Dosage: 2.6G PER DAY
     Route: 042
     Dates: start: 20100518, end: 20100519
  3. CLINDAMYCIN HCL [Concomitant]
     Route: 065
  4. DOLIPRANE [Concomitant]
     Route: 065
  5. CODENFAN [Concomitant]
     Route: 065

REACTIONS (3)
  - INCORRECT DOSE ADMINISTERED [None]
  - MEDICATION ERROR [None]
  - OVERDOSE [None]
